FAERS Safety Report 18265565 (Version 1)
Quarter: 2020Q3

REPORT INFORMATION
  Report Type: Spontaneous
  Country: US (occurrence: US)
  Receive Date: 20200914
  Receipt Date: 20200914
  Transmission Date: 20201103
  Serious: No
  Sender: FDA-Public Use
  Company Number: US-BAUSCH-BL-2020-026298

PATIENT
  Sex: Female

DRUGS (2)
  1. CARBIDOPA. [Suspect]
     Active Substance: CARBIDOPA
     Indication: PRODUCT USED FOR UNKNOWN INDICATION
     Dosage: HAD BEEN USING THE PRODUCT FOR YEARS
     Route: 065
  2. CARBIDOPA. [Suspect]
     Active Substance: CARBIDOPA
     Dosage: MOST RECENT BOTTLE
     Route: 065

REACTIONS (2)
  - Illness [Not Recovered/Not Resolved]
  - Product quality issue [Unknown]
